FAERS Safety Report 24718462 (Version 1)
Quarter: 2024Q4

REPORT INFORMATION
  Report Type: Spontaneous
  Country: US (occurrence: US)
  Receive Date: 20241210
  Receipt Date: 20241210
  Transmission Date: 20250114
  Serious: No
  Sender: SANOFI AVENTIS
  Company Number: US-SA-2024SA363691

PATIENT
  Sex: Female
  Weight: 49.55 kg

DRUGS (2)
  1. DUPIXENT [Suspect]
     Active Substance: DUPILUMAB
     Indication: Dermatitis atopic
     Dosage: 200 MG QOW
     Route: 058
  2. ELIDEL [Concomitant]
     Active Substance: PIMECROLIMUS

REACTIONS (2)
  - Skin haemorrhage [Not Recovered/Not Resolved]
  - Product dose omission issue [Not Recovered/Not Resolved]
